FAERS Safety Report 9804960 (Version 4)
Quarter: 2025Q3

REPORT INFORMATION
  Report Type: Spontaneous
  Country: US (occurrence: US)
  Receive Date: 20140109
  Receipt Date: 20250922
  Transmission Date: 20251021
  Serious: Yes (Hospitalization, Other)
  Sender: ROCHE
  Company Number: US-ROCHE-1329804

PATIENT
  Age: 60 Year
  Sex: Female
  Weight: 74.84 kg

DRUGS (2)
  1. BONIVA [Suspect]
     Active Substance: IBANDRONATE SODIUM
     Indication: Osteoporosis
     Route: 048
     Dates: start: 200603, end: 201112
  2. FOSAMAX [Suspect]
     Active Substance: ALENDRONATE SODIUM
     Indication: Osteoporosis
     Route: 065
     Dates: start: 200603, end: 201112

REACTIONS (7)
  - Femur fracture [Unknown]
  - Emotional distress [Unknown]
  - Pharyngitis [Unknown]
  - Bronchitis [Unknown]
  - Dysuria [Unknown]
  - Insomnia [Unknown]
  - Urinary tract infection [Unknown]

NARRATIVE: CASE EVENT DATE: 20111231
